FAERS Safety Report 9865647 (Version 1)
Quarter: 2014Q1

REPORT INFORMATION
  Report Type: Spontaneous
  Country: US (occurrence: US)
  Receive Date: 20140203
  Receipt Date: 20140203
  Transmission Date: 20141002
  Serious: No
  Sender: FDA-Public Use
  Company Number: US-ALLERGAN-1306872US

PATIENT
  Age: 66 Year
  Sex: Female

DRUGS (9)
  1. RESTASIS [Suspect]
     Indication: DRY EYE
     Dosage: 2 GTT, BID
     Route: 047
     Dates: start: 201205
  2. METOPROLOL [Concomitant]
     Indication: HYPERTENSION
     Dosage: 25 MG, BID
     Route: 048
  3. EQUATE EYE OINTMENT [Concomitant]
     Indication: DRY EYE
     Dosage: UNK, PRN
  4. REFRESH LIQUIGEL OPHTHALMIC [Concomitant]
     Indication: DRY EYE
     Route: 047
  5. LUBRICATING EYE DROPS NOS [Concomitant]
     Indication: DRY EYE
     Dosage: UNK
  6. FLAXSEED OIL [Concomitant]
     Indication: NUTRITIONAL SUPPLEMENTATION
     Dosage: UNK
  7. FISH OIL [Concomitant]
     Indication: NUTRITIONAL SUPPLEMENTATION
     Dosage: UNK
  8. CROTAMAX [Concomitant]
     Indication: NUTRITIONAL SUPPLEMENTATION
     Dosage: UNK
  9. LOTEMAX [Concomitant]
     Indication: PRODUCT USED FOR UNKNOWN INDICATION
     Dosage: 1-2 TIMES DAILY
     Route: 047
     Dates: start: 201212

REACTIONS (1)
  - Drug ineffective [Unknown]
